FAERS Safety Report 7730428-3 (Version None)
Quarter: 2011Q3

REPORT INFORMATION
  Report Type: 
  Country: None (occurrence: None)
  Receive Date: 20110822
  Receipt Date: 20110808
  Transmission Date: 20111222
  Serious: Yes (Other)
  Sender: FDA-Public Use
  Company Number: 2011029503

PATIENT
  Age: 36 Year
  Sex: Female
  Weight: 50.8029 kg

DRUGS (4)
  1. XOPENEX [Concomitant]
  2. CLONAZEPAM [Concomitant]
  3. HIZENTRA [Suspect]
     Indication: IMMUNODEFICIENCY COMMON VARIABLE
     Dosage: (8 G 1X/WEEK, (40 ML) 3 SIES OVER 103 HOURS SUBCUTANEOUS)
     Route: 058
     Dates: start: 20110804
  4. TYLENOL EX (PARACETAMOL) [Concomitant]

REACTIONS (8)
  - CHILLS [None]
  - DISORIENTATION [None]
  - DEHYDRATION [None]
  - NAUSEA [None]
  - HEADACHE [None]
  - PYREXIA [None]
  - DIZZINESS [None]
  - FEELING ABNORMAL [None]
